FAERS Safety Report 9186122 (Version 5)
Quarter: 2015Q2

REPORT INFORMATION
  Report Type: Spontaneous
  Country: US (occurrence: US)
  Receive Date: 20130325
  Receipt Date: 20150514
  Transmission Date: 20150821
  Serious: Yes (Other)
  Sender: FDA-Public Use
  Company Number: US-GLAXOSMITHKLINE-A0975028A

PATIENT
  Age: 72 Year
  Sex: Female

DRUGS (10)
  1. COUMADIN [Concomitant]
     Active Substance: WARFARIN SODIUM
  2. FLOLAN [Suspect]
     Active Substance: EPOPROSTENOL SODIUM
     Dosage: 50 NG/KG/MIN CONTINUOUSLY; 75,000 NG/ML; PUMP RATE: 79 ML/DAY; VIAL STRENGTH: 1.5 MG
     Dates: start: 20030919
  3. REVATIO [Concomitant]
     Active Substance: SILDENAFIL CITRATE
  4. ALDACTONE [Concomitant]
     Active Substance: SPIRONOLACTONE
  5. FLOLAN [Suspect]
     Active Substance: EPOPROSTENOL SODIUM
     Indication: PULMONARY ARTERIAL HYPERTENSION
     Dosage: 50 NG/KG/MIN, CONCENTRATION 75000 NG/ML, PUMP RATE 79 ML/DAY (VIAL STRENGTH 1.5)
     Route: 042
     Dates: start: 20030825
  6. FLOLAN [Suspect]
     Active Substance: EPOPROSTENOL SODIUM
     Dosage: UNK
     Dates: start: 20030825
  7. FLOLAN [Suspect]
     Active Substance: EPOPROSTENOL SODIUM
     Dosage: UNK
     Dates: start: 20030825
  8. FLOLAN [Suspect]
     Active Substance: EPOPROSTENOL SODIUM
     Indication: PRODUCT USED FOR UNKNOWN INDICATION
     Route: 042
  9. FLOLAN [Suspect]
     Active Substance: EPOPROSTENOL SODIUM
     Dosage: UNK
     Dates: start: 20030825
  10. FLOLAN [Suspect]
     Active Substance: EPOPROSTENOL SODIUM
     Dosage: UNK
     Dates: start: 20030825

REACTIONS (9)
  - Medical device complication [Unknown]
  - Dermatitis contact [Not Recovered/Not Resolved]
  - Seasonal allergy [Unknown]
  - Application site pruritus [Not Recovered/Not Resolved]
  - Oropharyngeal pain [Not Recovered/Not Resolved]
  - Musculoskeletal pain [Unknown]
  - Diarrhoea [Unknown]
  - Thrombosis in device [Unknown]
  - Application site erythema [Not Recovered/Not Resolved]

NARRATIVE: CASE EVENT DATE: 20120530
